FAERS Safety Report 15868986 (Version 1)
Quarter: 2019Q1

REPORT INFORMATION
  Report Type: Report from Study
  Country: FR (occurrence: FR)
  Receive Date: 20190125
  Receipt Date: 20190125
  Transmission Date: 20190417
  Serious: No
  Sender: FDA-Public Use
  Company Number: FR-TESAROUBC-2018-TSO1680-FR

PATIENT

DRUGS (3)
  1. BLINDED NIRAPARIB [Suspect]
     Active Substance: NIRAPARIB
     Indication: OVARIAN CANCER
  2. BLINDED NO STUDY DRUG ADMINISTERED [Suspect]
     Active Substance: INVESTIGATIONAL PRODUCT
     Indication: OVARIAN CANCER
  3. BLINDED PLACEBO [Suspect]
     Active Substance: INVESTIGATIONAL PRODUCT
     Indication: OVARIAN CANCER

REACTIONS (1)
  - Neutropenia [Recovered/Resolved]

NARRATIVE: CASE EVENT DATE: 20180618
